FAERS Safety Report 5405168-6 (Version None)
Quarter: 2007Q3

REPORT INFORMATION
  Report Type: 
  Country: None (occurrence: None)
  Receive Date: 20070803
  Receipt Date: 20070724
  Transmission Date: 20080115
  Serious: Yes (Other)
  Sender: FDA-Public Use
  Company Number: US-SANOFI-SYNTHELABO-A03200601607

PATIENT
  Sex: Female
  Weight: 59.9 kg

DRUGS (10)
  1. AMBIEN [Suspect]
     Dosage: 5 TO 10 MG AT NIGHT
     Route: 048
  2. AMBIEN [Suspect]
     Dosage: 5 TO 10 MG HS
     Route: 048
  3. HYDROMORPHONE HCL [Concomitant]
     Dosage: UNK
     Route: 048
  4. AUGMENTIN '125' [Concomitant]
     Dosage: 875-125 MG
     Route: 048
  5. XANAX [Concomitant]
     Route: 048
     Dates: start: 20011218
  6. CLONAZEPAM [Concomitant]
     Dosage: UNK
     Route: 048
  7. CLIMARA [Concomitant]
     Route: 061
  8. LORAZEPAM [Concomitant]
     Dosage: UNK
     Route: 048
  9. DIAZEPAM [Concomitant]
     Dosage: ONE-HALF(0.5 MG) TABLET H.S. PRN
     Route: 048
     Dates: end: 19990803
  10. LOESTRIN [Concomitant]
     Dosage: 1.5 / 30 MG
     Route: 048
     Dates: end: 19990803

REACTIONS (9)
  - AMNESIA [None]
  - ANXIETY [None]
  - BLOOD PRESSURE INCREASED [None]
  - DISORIENTATION [None]
  - DRUG INEFFECTIVE [None]
  - EATING DISORDER [None]
  - MOOD SWINGS [None]
  - SOMNAMBULISM [None]
  - STRESS [None]
